FAERS Safety Report 6600123 (Version 2)
Quarter: 2013Q4

REPORT INFORMATION
  Report Type: Spontaneous
  Country: US (occurrence: US)
  Receive Date: 20080328
  Receipt Date: 20131014
  Transmission Date: 20140711
  Serious: Yes (Other)
  Sender: FDA-Public Use
  Company Number: US-BAYER-US-2006-040318

PATIENT
  Age: 35 Year
  Sex: Female

DRUGS (1)
  1. MIRENA [Suspect]
     Dosage: 20 ?G/DAY, CONT
     Route: 015
     Dates: start: 20050815, end: 2008

REACTIONS (9)
  - Breast discharge [Not Recovered/Not Resolved]
  - Amenorrhoea [Recovered/Resolved]
  - Uterine perforation [None]
  - Abdominal pain lower [None]
  - Pelvic pain [None]
  - Urinary tract infection [None]
  - Infertility [None]
  - Injury [None]
  - Emotional distress [None]
